FAERS Safety Report 7334289-6 (Version None)
Quarter: 2011Q1

REPORT INFORMATION
  Report Type: 
  Country: None (occurrence: None)
  Receive Date: 20110307
  Receipt Date: 20110214
  Transmission Date: 20110831
  Serious: Yes (Other)
  Sender: FDA-Public Use
  Company Number: US-BAYER-201032450NA

PATIENT
  Sex: Female
  Weight: 88.435 kg

DRUGS (2)
  1. PREVACID [Concomitant]
  2. YAZ [Suspect]
     Route: 048
     Dates: start: 20070801

REACTIONS (4)
  - CHOLECYSTITIS [None]
  - NAUSEA [None]
  - BILIARY DYSKINESIA [None]
  - VOMITING [None]
